FAERS Safety Report 7374226-1 (Version None)
Quarter: 2011Q1

REPORT INFORMATION
  Report Type: 
  Country: None (occurrence: None)
  Receive Date: 20110325
  Receipt Date: 20110314
  Transmission Date: 20110831
  Serious: Yes (Hospitalization)
  Sender: FDA-Public Use
  Company Number: JP-NOVOPROD-324458

PATIENT
  Age: 39 Year
  Sex: Male
  Weight: 85 kg

DRUGS (6)
  1. DIOVAN [Concomitant]
     Dosage: 160 MG, QD
     Route: 048
  2. CONIEL [Concomitant]
     Dosage: 8 MG, QD
     Route: 048
     Dates: start: 20110118
  3. VICTOZA [Suspect]
     Indication: TYPE 2 DIABETES MELLITUS
     Dosage: 0.3 MG, QD
     Route: 058
     Dates: start: 20110105, end: 20110118
  4. VICTOZA [Suspect]
     Dosage: 0.9 MG, QD
     Route: 058
     Dates: start: 20110202, end: 20110303
  5. AMARYL [Concomitant]
     Dosage: 0.5 MG, QD
     Route: 048
     Dates: start: 20081117, end: 20110302
  6. VICTOZA [Suspect]
     Dosage: 0.6 MG, QD
     Route: 058
     Dates: start: 20110119, end: 20110201

REACTIONS (2)
  - BLOOD CREATINE PHOSPHOKINASE INCREASED [None]
  - BRONCHITIS [None]
